FAERS Safety Report 19436381 (Version 1)
Quarter: 2021Q2

REPORT INFORMATION
  Report Type: Spontaneous
  Country: US (occurrence: US)
  Receive Date: 20210618
  Receipt Date: 20210618
  Transmission Date: 20210717
  Serious: Yes (Hospitalization)
  Sender: FDA-Public Use
  Company Number: US-ELI_LILLY_AND_COMPANY-US202106004321

PATIENT
  Sex: Female

DRUGS (12)
  1. HUMALOG [Suspect]
     Active Substance: INSULIN LISPRO
     Indication: PRODUCT USED FOR UNKNOWN INDICATION
     Dosage: 6 UNITS PLUS SLIDING SCALE 3 TIMES DAILY
     Route: 058
  2. HUMALOG [Suspect]
     Active Substance: INSULIN LISPRO
     Dosage: 6 UNITS PLUS SLIDING SCALE 3 TIMES DAILY
     Route: 058
  3. HUMALOG [Suspect]
     Active Substance: INSULIN LISPRO
     Indication: PRODUCT USED FOR UNKNOWN INDICATION
     Dosage: 6 UNITS PLUS SLIDING SCALE 3 TIMES DAILY
     Route: 058
  4. HUMALOG [Suspect]
     Active Substance: INSULIN LISPRO
     Dosage: 6 UNITS PLUS SLIDING SCALE 3 TIMES DAILY
     Route: 058
  5. HUMALOG [Suspect]
     Active Substance: INSULIN LISPRO
     Dosage: 6 UNITS PLUS SLIDING SCALE 3 TIMES DAILY
     Route: 058
  6. HUMALOG [Suspect]
     Active Substance: INSULIN LISPRO
     Indication: PRODUCT USED FOR UNKNOWN INDICATION
     Dosage: 6 UNITS PLUS SLIDING SCALE 3 TIMES DAILY
     Route: 058
  7. HUMALOG [Suspect]
     Active Substance: INSULIN LISPRO
     Dosage: 6 UNITS PLUS SLIDING SCALE 3 TIMES DAILY
     Route: 058
  8. HUMALOG [Suspect]
     Active Substance: INSULIN LISPRO
     Indication: PRODUCT USED FOR UNKNOWN INDICATION
     Dosage: 6 UNITS PLUS SLIDING SCALE 3 TIMES DAILY
     Route: 058
  9. HUMALOG [Suspect]
     Active Substance: INSULIN LISPRO
     Dosage: 6 UNITS PLUS SLIDING SCALE 3 TIMES DAILY
     Route: 058
  10. HUMALOG [Suspect]
     Active Substance: INSULIN LISPRO
     Indication: TYPE 1 DIABETES MELLITUS
     Dosage: UNK UNK, UNKNOWN
     Route: 058
     Dates: start: 2017
  11. HUMALOG [Suspect]
     Active Substance: INSULIN LISPRO
     Dosage: 6 UNITS PLUS SLIDING SCALE 3 TIMES DAILY
     Route: 058
  12. LANTUS [Concomitant]
     Active Substance: INSULIN GLARGINE
     Indication: TYPE 1 DIABETES MELLITUS
     Dosage: 18 U, BID

REACTIONS (9)
  - COVID-19 [Recovered/Resolved]
  - Pulmonary embolism [Recovered/Resolved]
  - Ankle fracture [Recovered/Resolved]
  - Ketoacidosis [Recovered/Resolved]
  - Herpes zoster [Recovered/Resolved]
  - Clostridium difficile infection [Recovered/Resolved]
  - Appendicitis [Recovered/Resolved]
  - Pneumonia [Recovered/Resolved]
  - Impaired gastric emptying [Recovered/Resolved]
